FAERS Safety Report 10203789 (Version 6)
Quarter: 2014Q4

REPORT INFORMATION
  Report Type: Other
  Country: IT (occurrence: IT)
  Receive Date: 20140529
  Receipt Date: 20141125
  Transmission Date: 20150528
  Serious: Yes (Death, Life-Threatening, Hospitalization)
  Sender: FDA-Public Use
  Company Number: IT-VERTEX PHARMACEUTICALS INC-2014-002525

PATIENT
  Age: 69 Year
  Sex: Male
  Weight: 70 kg

DRUGS (3)
  1. PEGYLATED INTERFERON ALPHA NOS [Suspect]
     Active Substance: PEGINTERFERON ALFA-2A OR PEGINTERFERON ALFA-2B
     Indication: ANTIVIRAL TREATMENT
     Dosage: 1 DF, QW
     Route: 058
     Dates: start: 20140325, end: 20140503
  2. RIBAVIRIN. [Suspect]
     Active Substance: RIBAVIRIN
     Indication: ANTIVIRAL TREATMENT
     Dosage: 3 TABLETS +2 TABLETS
     Route: 048
     Dates: start: 20140325, end: 20140503
  3. INCIVO [Suspect]
     Active Substance: TELAPREVIR
     Indication: ANTIVIRAL TREATMENT
     Dosage: 2250 MG, QD
     Route: 048
     Dates: start: 20140325, end: 20140503

REACTIONS (8)
  - Cholestasis [Fatal]
  - Rash [Fatal]
  - Septic shock [Fatal]
  - Syncope [Unknown]
  - Encephalopathy [Fatal]
  - Apraxia [Unknown]
  - Hepatic failure [Fatal]
  - Rash erythematous [Unknown]

NARRATIVE: CASE EVENT DATE: 20140407
